FAERS Safety Report 5095522-7 (Version None)
Quarter: 2006Q3

REPORT INFORMATION
  Report Type: 
  Country: None (occurrence: None)
  Receive Date: 20060831
  Receipt Date: 20060831
  Transmission Date: 20061208
  Serious: Yes (Life-Threatening)
  Sender: FDA-Public Use
  Company Number: None

PATIENT
  Age: 21 Year
  Sex: Male
  Weight: 200 kg

DRUGS (8)
  1. MORPHINE [Suspect]
     Indication: PAIN
     Dosage: 4 MG IV Q 4 H PRN
     Dates: start: 20060514, end: 20060518
  2. FRAGMIN [Concomitant]
  3. ANCEF [Concomitant]
  4. ALBUTEROL [Concomitant]
  5. VANCO [Concomitant]
  6. CLINDA [Concomitant]
  7. MS CONTIN [Concomitant]
  8. NAPROSYN [Concomitant]

REACTIONS (4)
  - CELLULITIS [None]
  - LOSS OF CONSCIOUSNESS [None]
  - RESPIRATORY DEPRESSION [None]
  - SIMILAR REACTION ON PREVIOUS EXPOSURE TO DRUG [None]
